FAERS Safety Report 7459639-1 (Version None)
Quarter: 2011Q2

REPORT INFORMATION
  Report Type: 
  Country: None (occurrence: None)
  Receive Date: 20110505
  Receipt Date: 20110420
  Transmission Date: 20111010
  Serious: Yes (Other)
  Sender: FDA-Public Use
  Company Number: PHHY2011SI31938

PATIENT
  Age: 72 Year
  Sex: Male

DRUGS (1)
  1. EXJADE [Suspect]
     Indication: HAEMOSIDEROSIS
     Dosage: 1000 MG, DAILY
     Dates: start: 20090109, end: 20100205

REACTIONS (4)
  - HAEMOGLOBIN DECREASED [None]
  - NEUTROPHIL COUNT DECREASED [None]
  - WHITE BLOOD CELL COUNT DECREASED [None]
  - PLATELET COUNT DECREASED [None]
